FAERS Safety Report 7644900-8 (Version None)
Quarter: 2011Q3

REPORT INFORMATION
  Report Type: 
  Country: None (occurrence: None)
  Receive Date: 20110729
  Receipt Date: 20110719
  Transmission Date: 20111222
  Serious: Yes (Hospitalization, Other)
  Sender: FDA-Public Use
  Company Number: ZA-ROCHE-791366

PATIENT
  Sex: Female

DRUGS (1)
  1. ACTEMRA [Suspect]
     Route: 065
     Dates: start: 20110401, end: 20110701

REACTIONS (3)
  - SEPSIS [None]
  - ARTHRITIS BACTERIAL [None]
  - HALLUCINATION [None]
